FAERS Safety Report 8404606 (Version 2)
Quarter: 2012Q4

REPORT INFORMATION
  Report Type: 
  Country: US (occurrence: US)
  Receive Date: 20120214
  Receipt Date: 20120913
  Transmission Date: 20130627
  Serious: Yes (Hospitalization)
  Sender: FDA-Public Use
  Company Number: US-BAYER-2012-013105

PATIENT
  Age: 32 Year
  Sex: Female
  Weight: 91 kg

DRUGS (20)
  1. YASMIN [Suspect]
     Indication: PREMENSTRUAL SYNDROME
     Dosage: UNK
     Dates: start: 20040616, end: 20040713
  2. YASMIN [Suspect]
     Indication: MENSTRUAL CYCLE MANAGEMENT
  3. METOPROLOL [Concomitant]
     Indication: HYPERTENSION
     Dosage: 100 mg, QD
     Route: 048
     Dates: start: 2000
  4. LOSARTAN [Concomitant]
     Indication: HYPERTENSION
     Dosage: 50 mg, QD
     Route: 048
     Dates: start: 2000
  5. DIURETICS [Concomitant]
     Indication: HYPERTENSION
     Dosage: 25 mg, QD
     Route: 048
     Dates: start: 2000
  6. NAPROXEN [Concomitant]
     Dosage: UNK
     Route: 048
     Dates: start: 2000
  7. MVI [Concomitant]
     Dosage: Daily
     Route: 048
  8. HERBAL PREPARATION [Concomitant]
     Dosage: UNK
  9. CYCLOBENZAPRINE [Concomitant]
     Dosage: 10
     Route: 048
  10. NABUMETONE [Concomitant]
     Dosage: 750 mg, UNK
     Route: 048
  11. HYDROCODONE W/APAP [Concomitant]
     Dosage: 5 mg, UNK
     Route: 048
  12. DOCUSATE SODIUM [Concomitant]
     Dosage: 10
     Route: 048
  13. FERROUS SULFATE [Concomitant]
     Dosage: 325 mg, UNK
     Route: 048
  14. NYSTOP [Concomitant]
     Dosage: 15 mg, UNK
     Route: 048
  15. CLARITIN [Concomitant]
  16. SUDAFED [Concomitant]
  17. FLONASE [Concomitant]
  18. PSEUDOEPHEDRINE [Concomitant]
  19. COLACE [Concomitant]
  20. NAPROSYN [Concomitant]

REACTIONS (7)
  - Pulmonary embolism [Recovered/Resolved]
  - Injury [Recovered/Resolved]
  - Anxiety [Recovered/Resolved]
  - Anhedonia [Recovered/Resolved]
  - Psychological trauma [Recovered/Resolved]
  - Fear [Recovered/Resolved]
  - Chest pain [Recovered/Resolved]
